FAERS Safety Report 12109201 (Version 1)
Quarter: 2016Q1

REPORT INFORMATION
  Report Type: Spontaneous
  Country: AT (occurrence: AT)
  Receive Date: 20160224
  Receipt Date: 20160224
  Transmission Date: 20160526
  Serious: Yes (Other)
  Sender: FDA-Public Use
  Company Number: AT-NOVOPROD-480552

PATIENT
  Sex: Male

DRUGS (3)
  1. NOVOMIX 30 PENFILL [Suspect]
     Active Substance: INSULIN ASPART
     Dosage: UNK
     Route: 065
  2. NOVOMIX 30 PENFILL [Suspect]
     Active Substance: INSULIN ASPART
     Dosage: 103 IE, QD (40/25/38 IU PER DAY)
     Route: 065
  3. NOVOMIX 30 PENFILL [Suspect]
     Active Substance: INSULIN ASPART
     Indication: DIABETES MELLITUS
     Dosage: 103 IE, QD (40/25/38 IU PER DAY)
     Route: 065

REACTIONS (3)
  - Dizziness [Unknown]
  - Product colour issue [Unknown]
  - Coma [Unknown]
